FAERS Safety Report 9173806 (Version 1)
Quarter: 2013Q1

REPORT INFORMATION
  Report Type: Spontaneous
  Country: US (occurrence: None)
  Receive Date: 20130318
  Receipt Date: 20130318
  Transmission Date: 20140127
  Serious: No
  Sender: FDA-Public Use
  Company Number: None

PATIENT
  Age: 10 Year
  Sex: Male
  Weight: 39.01 kg

DRUGS (1)
  1. VYVANSE  40MG  SHIRE [Suspect]
     Indication: ATTENTION DEFICIT/HYPERACTIVITY DISORDER
     Dosage: 1 PILL, DAILY, PO
     Route: 048
     Dates: start: 20130101, end: 20130310

REACTIONS (9)
  - Rash [None]
  - Viral infection [None]
  - Lip pruritus [None]
  - Cheilitis [None]
  - Rash [None]
  - Swelling face [None]
  - Eye swelling [None]
  - Nasal oedema [None]
  - Scar [None]
